FAERS Safety Report 20102453 (Version 4)
Quarter: 2021Q4

REPORT INFORMATION
  Report Type: Report from Study
  Country: US (occurrence: US)
  Receive Date: 20211123
  Receipt Date: 20211209
  Transmission Date: 20220303
  Serious: Yes (Death, Other)
  Sender: FDA-Public Use
  Company Number: US-Taiho Oncology Inc-EU-2021-03381

PATIENT
  Age: 65 Year
  Sex: Female
  Weight: 62.198 kg

DRUGS (3)
  1. LONSURF [Suspect]
     Active Substance: TIPIRACIL HYDROCHLORIDE\TRIFLURIDINE
     Indication: Appendix cancer
     Dosage: CYCLE 1
     Route: 048
     Dates: start: 20210918, end: 20211115
  2. GABAPENTIN [Concomitant]
     Active Substance: GABAPENTIN
  3. SENOKOT [Concomitant]
     Active Substance: SENNOSIDES

REACTIONS (5)
  - Death [Fatal]
  - Urinary bladder haemorrhage [Unknown]
  - Disease progression [Unknown]
  - Diarrhoea [Recovered/Resolved]
  - Product dose omission issue [Unknown]

NARRATIVE: CASE EVENT DATE: 20210101
